FAERS Safety Report 6511951-6 (Version None)
Quarter: 2009Q4

REPORT INFORMATION
  Report Type: 
  Country: None (occurrence: None)
  Receive Date: 20091222
  Receipt Date: 20090617
  Transmission Date: 20100525
  Serious: No
  Sender: FDA-Public Use
  Company Number: US-ASTRAZENECA-2009UW15747

PATIENT
  Age: 78 Year
  Sex: Female
  Weight: 44.5 kg

DRUGS (3)
  1. CRESTOR [Suspect]
     Indication: HYPERCHOLESTEROLAEMIA
     Route: 048
  2. LASIX [Concomitant]
  3. POTASSIUM [Concomitant]

REACTIONS (4)
  - GASTRIC DISORDER [None]
  - HEADACHE [None]
  - ILL-DEFINED DISORDER [None]
  - MUSCULOSKELETAL CHEST PAIN [None]
